FAERS Safety Report 9739168 (Version 3)
Quarter: 2014Q2

REPORT INFORMATION
  Report Type: Report from Study
  Country: US (occurrence: US)
  Receive Date: 20131209
  Receipt Date: 20140602
  Transmission Date: 20141212
  Serious: Yes (Other)
  Sender: FDA-Public Use
  Company Number: US-ROCHE-1316247

PATIENT
  Age: 43 Year
  Sex: Male

DRUGS (2)
  1. RITUXIMAB [Suspect]
     Indication: HAIRY CELL LEUKAEMIA
     Dosage: 8 WEEKLY I.V. INFUSIONS
     Route: 042
  2. CLADRIBINE [Suspect]
     Indication: HAIRY CELL LEUKAEMIA
     Dosage: 5 DAILY DOSES BY 2 HOUR
     Route: 042

REACTIONS (2)
  - Neutropenia [Unknown]
  - Hypophosphataemia [Unknown]
